FAERS Safety Report 17189184 (Version 1)
Quarter: 2019Q4

REPORT INFORMATION
  Report Type: Other
  Country: GB (occurrence: GB)
  Receive Date: 20191223
  Receipt Date: 20191223
  Transmission Date: 20200122
  Serious: Yes (Other)
  Sender: FDA-Public Use
  Company Number: GB-EMCURE PHARMACEUTICALS LTD-2019-EPL-1217

PATIENT
  Age: 30 Year
  Sex: Female
  Weight: 65 kg

DRUGS (2)
  1. MARVELON [Concomitant]
     Active Substance: DESOGESTREL\ETHINYL ESTRADIOL
     Indication: CONTRACEPTION
     Dosage: UNK
  2. SERTRALINE HYDROCHLORIDE. [Suspect]
     Active Substance: SERTRALINE HYDROCHLORIDE
     Indication: DEPRESSION
     Dosage: 50 MILLIGRAM
     Route: 048
     Dates: start: 20191109

REACTIONS (1)
  - Sensation of foreign body [Not Recovered/Not Resolved]

NARRATIVE: CASE EVENT DATE: 20191116
